FAERS Safety Report 5462953-2 (Version None)
Quarter: 2007Q3

REPORT INFORMATION
  Report Type: 
  Country: None (occurrence: None)
  Receive Date: 20070920
  Receipt Date: 20070913
  Transmission Date: 20080115
  Serious: Yes (Life-Threatening, Hospitalization, Disabling, Other)
  Sender: FDA-Public Use
  Company Number: MX-AVENTIS-200718447GDDC

PATIENT
  Sex: Female
  Weight: 73.6 kg

DRUGS (8)
  1. LANTUS [Suspect]
     Dates: start: 20070724
  2. LANTUS [Suspect]
     Dates: end: 20070817
  3. GLYBURIDE [Suspect]
     Route: 048
     Dates: start: 19970101
  4. METFORMIN HCL [Suspect]
     Route: 048
     Dates: start: 19970101
  5. ENALAPRIL MALEATE [Concomitant]
     Indication: HYPERTENSION
     Route: 048
     Dates: start: 20070716
  6. AMITRIPTILIN [Concomitant]
     Indication: NEUROPATHY
     Route: 048
     Dates: start: 20061214
  7. FUROSEMIDE [Concomitant]
     Route: 048
     Dates: start: 20070716
  8. ESPIRONOLACTONA [Concomitant]
     Route: 048
     Dates: start: 20070716

REACTIONS (1)
  - HIP FRACTURE [None]
